FAERS Safety Report 7763439-2 (Version None)
Quarter: 2011Q3

REPORT INFORMATION
  Report Type: 
  Country: None (occurrence: None)
  Receive Date: 20110920
  Receipt Date: 20110912
  Transmission Date: 20111222
  Serious: Yes (Hospitalization)
  Sender: FDA-Public Use
  Company Number: IT-CEPHALON-2011004959

PATIENT
  Sex: Female
  Weight: 65 kg

DRUGS (3)
  1. BORTEZOMIB [Concomitant]
     Dates: start: 20110721, end: 20110801
  2. DEXAMETHASONE [Concomitant]
     Dates: start: 20110721, end: 20110801
  3. TREANDA [Suspect]
     Route: 042
     Dates: start: 20110721, end: 20110801

REACTIONS (1)
  - DIVERTICULITIS [None]
